FAERS Safety Report 5098574-3 (Version None)
Quarter: 2006Q3

REPORT INFORMATION
  Report Type: 
  Country: None (occurrence: None)
  Receive Date: 20060906
  Receipt Date: 20060308
  Transmission Date: 20061208
  Serious: No
  Sender: FDA-Public Use
  Company Number: US-GLAXOSMITHKLINE-A0596737A

PATIENT
  Age: 73 Year
  Sex: Female

DRUGS (14)
  1. REQUIP [Suspect]
     Indication: RESTLESS LEGS SYNDROME
     Route: 048
  2. CO Q10 [Concomitant]
  3. ONE A DAY [Concomitant]
  4. OSCAL [Concomitant]
  5. CARTIA XT [Concomitant]
  6. GLYBURIDE [Concomitant]
  7. ZYRTEC [Concomitant]
  8. CAL MAG [Concomitant]
  9. FOLIC ACID [Concomitant]
  10. PRAVACHOL [Concomitant]
  11. DILANTIN [Concomitant]
  12. ECOTRIN [Concomitant]
  13. TOPRAL [Concomitant]
  14. PLAVIX [Concomitant]

REACTIONS (1)
  - DRUG INEFFECTIVE [None]
